FAERS Safety Report 7339868-8 (Version None)
Quarter: 2011Q1

REPORT INFORMATION
  Report Type: 
  Country: None (occurrence: None)
  Receive Date: 20110309
  Receipt Date: 20110210
  Transmission Date: 20110831
  Serious: Yes (Other)
  Sender: FDA-Public Use
  Company Number: US-BAYER-201035579NA

PATIENT
  Sex: Female
  Weight: 72.562 kg

DRUGS (2)
  1. YASMIN [Suspect]
     Dosage: UNK
     Dates: start: 20050330, end: 20091019
  2. OCELLA [Suspect]
     Dosage: UNK
     Dates: start: 20050330, end: 20091019

REACTIONS (3)
  - ANXIETY [None]
  - GALLBLADDER DISORDER [None]
  - PAIN [None]
